FAERS Safety Report 24217907 (Version 1)
Quarter: 2024Q3

REPORT INFORMATION
  Report Type: Spontaneous
  Country: CN (occurrence: CN)
  Receive Date: 20240816
  Receipt Date: 20240816
  Transmission Date: 20241017
  Serious: Yes (Other)
  Sender: NOVARTIS
  Company Number: CN-002147023-NVSC2024CN165145

PATIENT
  Age: 34 Year
  Sex: Female

DRUGS (4)
  1. PAZOPANIB [Suspect]
     Active Substance: PAZOPANIB
     Indication: Clear cell renal cell carcinoma
     Dosage: 800 MG QD
     Route: 065
     Dates: start: 20220108
  2. PAZOPANIB [Suspect]
     Active Substance: PAZOPANIB
     Dosage: 200 MG
     Route: 065
  3. METHYLPREDNISOLONE [Concomitant]
     Active Substance: METHYLPREDNISOLONE
     Indication: Product used for unknown indication
     Dosage: 80 MG
     Route: 042
  4. METHYLPREDNISOLONE [Concomitant]
     Active Substance: METHYLPREDNISOLONE
     Dosage: ON 24TH JAN, 80 MG, BID FOR 10 DAYS
     Route: 042

REACTIONS (9)
  - Immune-mediated adverse reaction [Unknown]
  - Pyrexia [Unknown]
  - Shock [Unknown]
  - Hepatic function abnormal [Unknown]
  - Hypoalbuminaemia [Unknown]
  - Thrombocytopenia [Unknown]
  - Ocular toxicity [Unknown]
  - Hypertension [Unknown]
  - Therapy partial responder [Unknown]
